FAERS Safety Report 11592827 (Version 4)
Quarter: 2015Q4

REPORT INFORMATION
  Report Type: Report from Study
  Country: US (occurrence: US)
  Receive Date: 20151005
  Receipt Date: 20151201
  Transmission Date: 20160304
  Serious: Yes (Hospitalization)
  Sender: FDA-Public Use
  Company Number: US-BIOGENIDEC-2015BI132915

PATIENT
  Age: 48 Year
  Sex: Female

DRUGS (1)
  1. TECFIDERA [Suspect]
     Active Substance: DIMETHYL FUMARATE
     Indication: MULTIPLE SCLEROSIS
     Route: 048
     Dates: start: 20150723, end: 20150912

REACTIONS (7)
  - Central nervous system lesion [Recovered/Resolved]
  - Nephrolithiasis [Not Recovered/Not Resolved]
  - Urinary incontinence [Recovered/Resolved]
  - Rash erythematous [Recovered/Resolved]
  - Peripheral swelling [Recovered/Resolved]
  - Abasia [Recovered/Resolved]
  - Mobility decreased [Recovered/Resolved]

NARRATIVE: CASE EVENT DATE: 201509
